FAERS Safety Report 25610912 (Version 1)
Quarter: 2025Q3

REPORT INFORMATION
  Report Type: Spontaneous
  Country: US (occurrence: None)
  Receive Date: 20250725
  Receipt Date: 20250725
  Transmission Date: 20251021
  Serious: Yes (Other)
  Sender: FDA-CTU
  Company Number: None

PATIENT
  Age: 67 Year
  Sex: Female
  Weight: 54.9 kg

DRUGS (8)
  1. RENFLEXIS [Suspect]
     Active Substance: INFLIXIMAB-ABDA
     Indication: Rheumatoid arthritis
     Route: 042
     Dates: start: 20250320, end: 20250626
  2. PREDNISONE [Suspect]
     Active Substance: PREDNISONE
  3. METHOTREXATE [Concomitant]
     Active Substance: METHOTREXATE
  4. FOLIC ACID [Concomitant]
     Active Substance: FOLIC ACID
  5. LEVOTHYROXINE [Concomitant]
     Active Substance: LEVOTHYROXINE
  6. RISEDRONATE SODIUM [Concomitant]
     Active Substance: RISEDRONATE SODIUM
  7. ACTEMRA [Concomitant]
     Active Substance: TOCILIZUMAB
  8. Tyenol Arthritis strength [Concomitant]

REACTIONS (9)
  - Chest pain [None]
  - Flushing [None]
  - Dizziness [None]
  - Dyspnoea [None]
  - Palpitations [None]
  - Infusion related reaction [None]
  - Pruritus [None]
  - Feeling hot [None]
  - Erythema [None]

NARRATIVE: CASE EVENT DATE: 20250626
